FAERS Safety Report 12607975 (Version 1)
Quarter: 2016Q3

REPORT INFORMATION
  Report Type: Spontaneous
  Country: US (occurrence: US)
  Receive Date: 20160729
  Receipt Date: 20160729
  Transmission Date: 20161109
  Serious: Yes (Death)
  Sender: FDA-Public Use
  Company Number: US-LPDUSPRD-20160659

PATIENT
  Age: 49 Year
  Sex: Male

DRUGS (7)
  1. METRONIDAZOLE. [Concomitant]
     Active Substance: METRONIDAZOLE
     Dosage: DOSE UNKNOWN
     Route: 042
  2. EPINEPHRINE INJECTION, USP (1071-25) [Suspect]
     Active Substance: EPINEPHRINE
     Dosage: DOSE UNKNOWN
     Route: 042
  3. METFORMIN [Suspect]
     Active Substance: METFORMIN HYDROCHLORIDE
     Dosage: 2500 MG (3 DIVIDED DOSES)
     Route: 065
  4. DOBUTAMINE [Concomitant]
     Active Substance: DOBUTAMINE\DOBUTAMINE HYDROCHLORIDE
     Dosage: DOSE UNKNOWN
     Route: 042
  5. VANCOMYCON [Concomitant]
     Dosage: DOSE UNKNOWN
     Route: 042
  6. LEVOFLOXACIN. [Concomitant]
     Active Substance: LEVOFLOXACIN
     Dosage: DOSE UNKNOWN
     Route: 042
  7. NOREPINEPHERINE [Suspect]
     Active Substance: NOREPINEPHRINE\NOREPINEPHRINE BITARTRATE
     Dosage: DOSE UNKNOWN
     Route: 042

REACTIONS (1)
  - Lactic acidosis [Fatal]
